FAERS Safety Report 9528224 (Version 1)
Quarter: 2013Q1

REPORT INFORMATION
  Report Type: Spontaneous
  Country: US (occurrence: None)
  Receive Date: 20130322
  Receipt Date: 20130322
  Transmission Date: 20140127
  Serious: Yes (Other)
  Sender: FDA-Public Use
  Company Number: PHEH2012US007002

PATIENT
  Sex: Male

DRUGS (1)
  1. NEORAL (CICLOSPORIN) UNKNOWN [Suspect]
     Indication: RENAL TRANSPLANT
     Dosage: 150 MG, BID, ORAL
     Route: 048

REACTIONS (1)
  - Blood creatine increased [None]
